FAERS Safety Report 6467466-7 (Version None)
Quarter: 2009Q4

REPORT INFORMATION
  Report Type: 
  Country: None (occurrence: None)
  Receive Date: 20091202
  Receipt Date: 20091130
  Transmission Date: 20100525
  Serious: Yes (Death, Other)
  Sender: FDA-Public Use
  Company Number: IT-BRISTOL-MYERS SQUIBB COMPANY-14873723

PATIENT
  Age: 73 Year
  Sex: Male

DRUGS (1)
  1. SPRYCEL [Suspect]
     Indication: CHRONIC MYELOID LEUKAEMIA
     Dates: start: 20090922, end: 20091123

REACTIONS (3)
  - ANAEMIA [None]
  - CARDIOGENIC SHOCK [None]
  - PULMONARY OEDEMA [None]
